FAERS Safety Report 7985116-5 (Version None)
Quarter: 2011Q4

REPORT INFORMATION
  Report Type: 
  Country: None (occurrence: None)
  Receive Date: 20111216
  Receipt Date: 20111214
  Transmission Date: 20120403
  Serious: No
  Sender: FDA-Public Use
  Company Number: PHHY2011US62799

PATIENT
  Sex: Male
  Weight: 92.971 kg

DRUGS (5)
  1. PLAVIX [Concomitant]
  2. GLIPIZIDE [Concomitant]
  3. RAMIPRIL [Concomitant]
  4. TASIGNA [Suspect]
     Indication: NEOPLASM MALIGNANT
     Dosage: 400 MG, BID
     Route: 048
     Dates: start: 20110620
  5. SIMVASTATIN [Concomitant]

REACTIONS (2)
  - CONSTIPATION [None]
  - RASH [None]
